FAERS Safety Report 8146652-4 (Version None)
Quarter: 2012Q1

REPORT INFORMATION
  Report Type: 
  Country: None (occurrence: None)
  Receive Date: 20120217
  Receipt Date: 20120201
  Transmission Date: 20120608
  Serious: No
  Sender: FDA-Public Use
  Company Number: US-ABBOTT-12P-163-0901721-00

PATIENT
  Sex: Female

DRUGS (1)
  1. SIMCOR [Suspect]
     Indication: PRODUCT USED FOR UNKNOWN INDICATION
     Dates: start: 20120131

REACTIONS (8)
  - HYPOAESTHESIA ORAL [None]
  - ADVERSE REACTION [None]
  - HYPOAESTHESIA [None]
  - PRURITUS [None]
  - DIZZINESS [None]
  - FEELING HOT [None]
  - SKIN TIGHTNESS [None]
  - SKIN BURNING SENSATION [None]
